FAERS Safety Report 6004486-0 (Version None)
Quarter: 2008Q4

REPORT INFORMATION
  Report Type: 
  Country: None (occurrence: None)
  Receive Date: 20081216
  Receipt Date: 20081215
  Transmission Date: 20090506
  Serious: Yes (Hospitalization)
  Sender: FDA-Public Use
  Company Number: CA-ASTRAZENECA-2008UW15188

PATIENT
  Age: 53 Year
  Sex: Female

DRUGS (1)
  1. CRESTOR [Suspect]
     Route: 048
     Dates: end: 20050101

REACTIONS (4)
  - ENDOMETRIOSIS [None]
  - GALLBLADDER DISORDER [None]
  - OVARIAN CYST [None]
  - PROCEDURAL NAUSEA [None]
